FAERS Safety Report 8314214-1 (Version None)
Quarter: 2012Q2

REPORT INFORMATION
  Report Type: 
  Country: None (occurrence: None)
  Receive Date: 20120424
  Receipt Date: 20120329
  Transmission Date: 20120825
  Serious: Yes (Hospitalization)
  Sender: FDA-Public Use
  Company Number: WAES 1203USA03976

PATIENT
  Age: 15 Year
  Sex: Female
  Weight: 45.8133 kg

DRUGS (18)
  1. PHOTINIA PYRIFOLIA [Concomitant]
  2. TURMERIC [Concomitant]
  3. LYCOPENS [Concomitant]
  4. RIDAFOROLIMUS [Concomitant]
  5. MORPHINE SULFATE [Concomitant]
  6. BLACK CURRANT (+) TEA [Concomitant]
  7. CYCLIZINE [Concomitant]
  8. DECADRON [Suspect]
     Indication: INTRACRANIAL PRESSURE INCREASED
     Dosage: 6MG/BID/PO, 4MG/BID/PIO, 3MG/BID/PO
     Route: 048
     Dates: start: 20120326, end: 20120328
  9. DECADRON [Suspect]
     Indication: INTRACRANIAL PRESSURE INCREASED
     Dosage: 6MG/BID/PO, 4MG/BID/PIO, 3MG/BID/PO
     Route: 048
     Dates: start: 20120328
  10. DECADRON [Suspect]
     Indication: INTRACRANIAL PRESSURE INCREASED
     Dosage: 6MG/BID/PO, 4MG/BID/PIO, 3MG/BID/PO
     Route: 048
     Dates: start: 20120324
  11. BACLOFEN [Concomitant]
  12. MANUKA HONEY [Concomitant]
  13. KEPPRA [Concomitant]
  14. BROCCOLI (+) CARROT [Concomitant]
  15. DEXAMETHASONEC [Concomitant]
  16. LANSPRAZOLE [Concomitant]
  17. SELENIUM [Concomitant]
  18. RADIANCE [Concomitant]

REACTIONS (6)
  - BACTERIAL INFECTION [None]
  - BLOOD SELENIUM INCREASED [None]
  - ASPARTATE AMINOTRANSFERASE INCREASED [None]
  - FATIGUE [None]
  - ORAL HERPES [None]
  - ALANINE AMINOTRANSFERASE INCREASED [None]
